FAERS Safety Report 19624631 (Version 2)
Quarter: 2021Q3

REPORT INFORMATION
  Report Type: Spontaneous
  Country: US (occurrence: US)
  Receive Date: 20210728
  Receipt Date: 20210811
  Transmission Date: 20211014
  Serious: Yes (Other)
  Sender: FDA-Public Use
  Company Number: US-ALKERMES INC.-ALK-2021-003918

PATIENT
  Sex: Male

DRUGS (2)
  1. VIVITROL [Suspect]
     Active Substance: NALTREXONE
     Indication: ALCOHOLISM
     Dosage: 380 MILLIGRAM, QMO
     Route: 030
     Dates: start: 20210521, end: 20210521
  2. VIVITROL [Suspect]
     Active Substance: NALTREXONE
     Dosage: 380 MILLIGRAM, QMO
     Route: 030
     Dates: start: 2019, end: 2019

REACTIONS (8)
  - Osteoarthritis [Recovered/Resolved]
  - Musculoskeletal discomfort [Not Recovered/Not Resolved]
  - Alcoholism [Not Recovered/Not Resolved]
  - Pain in extremity [Unknown]
  - Gait inability [Unknown]
  - Loss of personal independence in daily activities [Unknown]
  - Mobility decreased [Unknown]
  - Substance use [Not Recovered/Not Resolved]
